FAERS Safety Report 8571066-2 (Version None)
Quarter: 2012Q3

REPORT INFORMATION
  Report Type: 
  Country: None (occurrence: None)
  Receive Date: 20120806
  Receipt Date: 20120803
  Transmission Date: 20120928
  Serious: No
  Sender: FDA-Public Use
  Company Number: US-PFIZER INC-2012189461

PATIENT
  Age: 49 Year
  Sex: Female
  Weight: 135 kg

DRUGS (3)
  1. LISINOPRIL AND HYDROCHLOROTHIAZIDE [Concomitant]
     Indication: HYPERTENSION
     Dosage: 20 MG/12.5 MG, DAILY
  2. PROVIGIL [Concomitant]
     Indication: CIRCADIAN RHYTHM SLEEP DISORDER
     Dosage: 10 MG, DAILY
  3. EFFEXOR XR [Suspect]
     Indication: DEPRESSION
     Dosage: 150 MG, DAILY
     Dates: end: 20120801

REACTIONS (4)
  - SOMNOLENCE [None]
  - DISTURBANCE IN ATTENTION [None]
  - FEELING ABNORMAL [None]
  - MOOD ALTERED [None]
